FAERS Safety Report 6595315-5 (Version None)
Quarter: 2010Q1

REPORT INFORMATION
  Report Type: 
  Country: None (occurrence: None)
  Receive Date: 20100219
  Receipt Date: 20100219
  Transmission Date: 20100710
  Serious: Yes (Other)
  Sender: FDA-Public Use
  Company Number: None

PATIENT
  Age: 53 Year
  Sex: Female

DRUGS (1)
  1. COPAXONE [Suspect]
     Indication: MULTIPLE SCLEROSIS
     Dosage: 20 CC? IN SHOT FORM 1 PER DAY CUTANEOUS
     Route: 003
     Dates: start: 20010501, end: 20100203

REACTIONS (11)
  - ABASIA [None]
  - ANGINA PECTORIS [None]
  - APPARENT DEATH [None]
  - ARTHRALGIA [None]
  - ASTHENIA [None]
  - DYSPNOEA [None]
  - FLUSHING [None]
  - IMMOBILE [None]
  - MYOCARDIAL INFARCTION [None]
  - PAIN IN EXTREMITY [None]
  - SIMILAR REACTION ON PREVIOUS EXPOSURE TO DRUG [None]
